FAERS Safety Report 5974391-4 (Version None)
Quarter: 2008Q4

REPORT INFORMATION
  Report Type: 
  Country: None (occurrence: None)
  Receive Date: 20081128
  Receipt Date: 20081119
  Transmission Date: 20090506
  Serious: Yes (Other)
  Sender: FDA-Public Use
  Company Number: 2008SP023675

PATIENT
  Age: 56 Year
  Sex: Male

DRUGS (1)
  1. PEG-INTRON [Suspect]
     Indication: HEPATITIS C
     Dates: start: 20080501, end: 20080801

REACTIONS (4)
  - ASTHENIA [None]
  - DIZZINESS [None]
  - MUSCLE ATROPHY [None]
  - WEIGHT DECREASED [None]
